FAERS Safety Report 24105200 (Version 1)
Quarter: 2024Q3

REPORT INFORMATION
  Report Type: Spontaneous
  Country: US (occurrence: US)
  Receive Date: 20240717
  Receipt Date: 20240717
  Transmission Date: 20241017
  Serious: Yes (Hospitalization)
  Sender: BRISTOL MYERS SQUIBB
  Company Number: US-BRISTOL-MYERS SQUIBB COMPANY-2024-113075

PATIENT
  Age: 60 Year
  Sex: Male
  Weight: 90.26 kg

DRUGS (2)
  1. REVLIMID [Suspect]
     Active Substance: LENALIDOMIDE
     Indication: Plasma cell myeloma
     Dosage: 25MG CAPSULE DAILY FOR 21 DAYS ON THEN 7 DAYS OFF
     Route: 048
     Dates: end: 20240624
  2. REVLIMID [Suspect]
     Active Substance: LENALIDOMIDE
     Dosage: 25MG CAPSULE DAILY FOR 21 DAYS ON THEN 7 DAYS OFF
     Route: 048
     Dates: start: 202407

REACTIONS (2)
  - Localised infection [Recovered/Resolved]
  - Haematological infection [Recovered/Resolved]
